FAERS Safety Report 26023789 (Version 1)
Quarter: 2025Q4

REPORT INFORMATION
  Report Type: Spontaneous
  Country: TR (occurrence: TR)
  Receive Date: 20251111
  Receipt Date: 20251111
  Transmission Date: 20260118
  Serious: Yes (Hospitalization, Other)
  Sender: TAKEDA
  Company Number: TR-TAKEDA-2025TUS098064

PATIENT
  Age: 22 Year
  Sex: Female
  Weight: 50 kg

DRUGS (1)
  1. COLCHICINE [Suspect]
     Active Substance: COLCHICINE
     Indication: Familial mediterranean fever
     Dosage: 25 MILLIGRAM

REACTIONS (17)
  - Toxicity to various agents [Unknown]
  - Pancytopenia [Unknown]
  - Respiratory distress [Unknown]
  - Suicide attempt [Unknown]
  - Haemodynamic instability [Unknown]
  - Intentional overdose [Unknown]
  - Alopecia [Unknown]
  - Bradycardia [Unknown]
  - Coagulopathy [Unknown]
  - Tachycardia [Unknown]
  - Hypotension [Unknown]
  - Muscular weakness [Unknown]
  - Electrolyte imbalance [Unknown]
  - Nausea [Unknown]
  - Diarrhoea [Unknown]
  - Abdominal pain [Unknown]
  - Vomiting [Unknown]
